FAERS Safety Report 7757559-6 (Version None)
Quarter: 2011Q3

REPORT INFORMATION
  Report Type: 
  Country: None (occurrence: None)
  Receive Date: 20110916
  Receipt Date: 20110907
  Transmission Date: 20111222
  Serious: Yes (Other)
  Sender: FDA-Public Use
  Company Number: JP-CELGENEUS-087-21880-11040165

PATIENT
  Sex: Male

DRUGS (42)
  1. VELCADE [Suspect]
     Indication: MULTIPLE MYELOMA
     Dosage: 1.3 MILLIGRAM/SQ. METER
     Route: 041
     Dates: start: 20101129, end: 20101129
  2. VELCADE [Suspect]
     Dosage: 1.3 MILLIGRAM/SQ. METER
     Route: 041
     Dates: start: 20101206, end: 20101209
  3. DECADRON [Concomitant]
     Dosage: 16.5 MILLIGRAM
     Route: 041
     Dates: start: 20110124, end: 20110125
  4. ASPIRIN [Concomitant]
     Indication: PROPHYLAXIS
     Dosage: 100 MILLIGRAM
     Route: 048
     Dates: start: 20101129, end: 20110206
  5. ZOMETA [Concomitant]
     Indication: MULTIPLE MYELOMA
     Dosage: 4 MILLIGRAM
     Route: 041
     Dates: start: 20101203, end: 20101203
  6. KYTRIL [Concomitant]
     Dosage: 3 MILLIGRAM
     Route: 041
     Dates: start: 20101209, end: 20101209
  7. VELCADE [Suspect]
     Dosage: 2.129 MILLIGRAM
     Route: 041
     Dates: start: 20101220, end: 20101229
  8. DEXAMETHASONE SODIUM PHOSPHATE [Suspect]
     Dosage: 13.2 MILLIGRAM
     Route: 041
     Dates: start: 20101206, end: 20101207
  9. DECADRON [Concomitant]
     Dosage: 16.5 MILLIGRAM
     Route: 041
     Dates: start: 20101220, end: 20101223
  10. DECADRON [Concomitant]
     Dosage: 16.5 MILLIGRAM
     Route: 041
     Dates: start: 20110117, end: 20110118
  11. SULFAMETHOXAZOLE [Concomitant]
     Indication: PROPHYLAXIS
     Dosage: 1 TABLET
     Route: 048
     Dates: start: 20101129, end: 20110206
  12. FUNGIZONE [Concomitant]
     Indication: PROPHYLAXIS
     Dosage: 16 MILLILITER
     Route: 048
     Dates: start: 20101129, end: 20101226
  13. MUCOSTA [Concomitant]
     Indication: PROPHYLAXIS
     Dosage: 300 MILLIGRAM
     Route: 048
     Dates: start: 20101129, end: 20110206
  14. ISODINE [Concomitant]
     Indication: PROPHYLAXIS
     Dosage: ADEQUATE DOSE
     Route: 048
     Dates: start: 20101129, end: 20110206
  15. ZOMETA [Concomitant]
     Indication: PROPHYLAXIS
     Dosage: 4 MILLIGRAM
     Route: 041
     Dates: start: 20110120, end: 20110120
  16. KYTRIL [Concomitant]
     Dosage: 3 MILLIGRAM
     Route: 041
     Dates: start: 20101206, end: 20101206
  17. KYTRIL [Concomitant]
     Dosage: 3 MILLIGRAM
     Route: 041
     Dates: start: 20110124, end: 20110124
  18. REVLIMID [Suspect]
     Indication: MULTIPLE MYELOMA
     Dosage: 25 MILLIGRAM
     Route: 048
     Dates: start: 20101129, end: 20101212
  19. DECADRON [Concomitant]
     Dosage: 3.3 MILLIGRAM
     Route: 041
     Dates: start: 20101206, end: 20101207
  20. DECADRON [Concomitant]
     Dosage: 3.3 MILLIGRAM
     Route: 041
     Dates: start: 20101209, end: 20101209
  21. ITRACONAZOLE [Concomitant]
     Indication: PROPHYLAXIS
     Dosage: 20 MILLILITER
     Route: 048
     Dates: start: 20110202, end: 20110206
  22. KYTRIL [Concomitant]
     Dosage: 3 MILLIGRAM
     Route: 041
     Dates: start: 20101202, end: 20101202
  23. KYTRIL [Concomitant]
     Dosage: 3 MILLIGRAM
     Route: 041
     Dates: start: 20110113, end: 20110114
  24. REVLIMID [Suspect]
     Dosage: 25 MILLIGRAM
     Route: 048
     Dates: start: 20110113, end: 20110126
  25. DECADRON [Concomitant]
     Indication: MULTIPLE MYELOMA
     Dosage: 3.3 MILLIGRAM
     Route: 041
     Dates: start: 20101129, end: 20101130
  26. DECADRON [Concomitant]
     Dosage: 16.5 MILLIGRAM
     Route: 041
     Dates: start: 20110113, end: 20110114
  27. KYTRIL [Concomitant]
     Indication: PROPHYLAXIS
     Dosage: 3 MILLIGRAM
     Route: 041
     Dates: start: 20101129, end: 20101129
  28. VELCADE [Suspect]
     Indication: REFRACTORY CANCER
     Dosage: 1.3 MILLIGRAM/SQ. METER
     Route: 041
     Dates: start: 20101202, end: 20101202
  29. DEXAMETHASONE SODIUM PHOSPHATE [Suspect]
     Indication: REFRACTORY CANCER
     Dosage: 13.2 MILLIGRAM
     Route: 041
     Dates: start: 20101202, end: 20101203
  30. KYTRIL [Concomitant]
     Dosage: 3 MILLIGRAM
     Route: 041
     Dates: start: 20101220, end: 20101229
  31. KYTRIL [Concomitant]
     Dosage: 3 MILLIGRAM
     Route: 041
     Dates: start: 20110117, end: 20110118
  32. KYTRIL [Concomitant]
     Dosage: 3 MILLIGRAM
     Route: 041
     Dates: start: 20110120, end: 20110120
  33. REVLIMID [Suspect]
     Indication: REFRACTORY CANCER
     Dosage: 25 MILLIGRAM
     Route: 048
     Dates: start: 20101220, end: 20110102
  34. LENDORMIN D [Concomitant]
     Dosage: .25 MILLIGRAM
     Route: 048
     Dates: start: 20101220, end: 20110206
  35. DEXAMETHASONE SODIUM PHOSPHATE [Suspect]
     Dosage: 13.2 MILLIGRAM
     Route: 041
     Dates: start: 20101209, end: 20101209
  36. VELCADE [Suspect]
     Dosage: 2.129 MILLIGRAM
     Route: 041
     Dates: start: 20110113, end: 20110124
  37. DEXAMETHASONE SODIUM PHOSPHATE [Suspect]
     Indication: MULTIPLE MYELOMA
     Dosage: 13.2 MILLIGRAM
     Route: 041
     Dates: start: 20101129, end: 20101130
  38. DECADRON [Concomitant]
     Indication: REFRACTORY CANCER
     Dosage: 3.3 MILLIGRAM
     Route: 041
     Dates: start: 20101202, end: 20101203
  39. DECADRON [Concomitant]
     Dosage: 16.5 MILLIGRAM
     Route: 041
     Dates: start: 20101227, end: 20101230
  40. DECADRON [Concomitant]
     Dosage: 16.5 MILLIGRAM
     Route: 041
     Dates: start: 20110120, end: 20110121
  41. ZOVIRAX [Concomitant]
     Indication: PROPHYLAXIS
     Dosage: 200 MILLIGRAM
     Route: 048
     Dates: start: 20101129, end: 20110206
  42. LANSOPRAZOLE [Concomitant]
     Indication: PROPHYLAXIS
     Dosage: 30 MILLIGRAM
     Route: 048
     Dates: start: 20101129, end: 20110206

REACTIONS (2)
  - HYPOGAMMAGLOBULINAEMIA [None]
  - HAEMOGLOBIN DECREASED [None]
